FAERS Safety Report 7113307-4 (Version None)
Quarter: 2010Q4

REPORT INFORMATION
  Report Type: 
  Country: None (occurrence: None)
  Receive Date: 20101119
  Receipt Date: 20101021
  Transmission Date: 20110411
  Serious: No
  Sender: FDA-Public Use
  Company Number: A0876177A

PATIENT
  Age: 57 Year
  Sex: Female

DRUGS (1)
  1. WELLBUTRIN SR [Suspect]
     Dosage: 150MG UNKNOWN
     Route: 048
     Dates: start: 20100803, end: 20100809

REACTIONS (1)
  - HYPOAESTHESIA ORAL [None]
